FAERS Safety Report 7130106-8 (Version None)
Quarter: 2010Q4

REPORT INFORMATION
  Report Type: 
  Country: None (occurrence: None)
  Receive Date: 20101201
  Receipt Date: 20101122
  Transmission Date: 20110411
  Serious: No
  Sender: FDA-Public Use
  Company Number: US-BIOGENIDEC-2010BI041642

PATIENT
  Age: 23 Year
  Sex: Male

DRUGS (1)
  1. TYSABRI [Suspect]
     Indication: MULTIPLE SCLEROSIS
     Route: 042
     Dates: start: 20100420

REACTIONS (7)
  - CHILLS [None]
  - MULTIPLE SCLEROSIS [None]
  - OROPHARYNGEAL PAIN [None]
  - PYREXIA [None]
  - SINUSITIS [None]
  - TONSILLITIS [None]
  - YELLOW SKIN [None]
